FAERS Safety Report 25701733 (Version 2)
Quarter: 2025Q3

REPORT INFORMATION
  Report Type: Report from Study
  Country: CA (occurrence: CA)
  Receive Date: 20250819
  Receipt Date: 20250821
  Transmission Date: 20251021
  Serious: Yes (Death)
  Sender: PFIZER
  Company Number: CA-PFIZER INC-202500164349

PATIENT
  Age: 58 Year
  Sex: Female

DRUGS (12)
  1. METHYLPREDNISOLONE SODIUM SUCCINATE [Suspect]
     Active Substance: METHYLPREDNISOLONE SODIUM SUCCINATE
     Indication: Interstitial lung disease
     Route: 042
  2. PANCURONIUM [Suspect]
     Active Substance: PANCURONIUM
     Indication: Interstitial lung disease
  3. ACETAMINOPHEN [Concomitant]
     Active Substance: ACETAMINOPHEN
  4. DIAZEPAM [Concomitant]
     Active Substance: DIAZEPAM
  5. DOPAMINE [Concomitant]
     Active Substance: DOPAMINE HYDROCHLORIDE
  6. ERYTHROMYCIN [Concomitant]
     Active Substance: ERYTHROMYCIN
  7. INSULIN NOS [Concomitant]
     Active Substance: INSULIN NOS
  8. FENTANYL [Concomitant]
     Active Substance: FENTANYL
  9. HEPARIN [Concomitant]
     Active Substance: HEPARIN SODIUM
  10. MORPHINE [Concomitant]
     Active Substance: MORPHINE
  11. POTASSIUM CHLORIDE [Concomitant]
     Active Substance: POTASSIUM CHLORIDE
  12. ALBUTEROL [Concomitant]
     Active Substance: ALBUTEROL

REACTIONS (2)
  - Necrotising myositis [Fatal]
  - Blood creatine phosphokinase increased [Fatal]
